FAERS Safety Report 5364357-X (Version None)
Quarter: 2007Q2

REPORT INFORMATION
  Report Type: 
  Country: None (occurrence: None)
  Receive Date: 20070618
  Receipt Date: 20070531
  Transmission Date: 20071010
  Serious: Yes (Hospitalization)
  Sender: FDA-Public Use
  Company Number: 8024461

PATIENT
  Age: 56 Year
  Sex: Female
  Weight: 77 kg

DRUGS (3)
  1. KEPPRA [Suspect]
     Dosage: 2 DF /D PO
     Route: 048
     Dates: start: 20070402, end: 20070427
  2. LASIX [Suspect]
     Dosage: PO
     Route: 048
     Dates: start: 20070402
  3. EPITOMAX [Concomitant]

REACTIONS (3)
  - CONDITION AGGRAVATED [None]
  - HAEMOGLOBIN DECREASED [None]
  - THROMBOCYTOPENIA [None]
